FAERS Safety Report 17702460 (Version 1)
Quarter: 2020Q2

REPORT INFORMATION
  Report Type: Report from Study
  Country: MX (occurrence: MX)
  Receive Date: 20200423
  Receipt Date: 20200423
  Transmission Date: 20200714
  Serious: Yes (Disabling, Other)
  Sender: FDA-Public Use
  Company Number: NVSC2020MX089527

PATIENT
  Age: 54 Year
  Sex: Female
  Weight: 95 kg

DRUGS (3)
  1. CO-DIOVAN [Suspect]
     Active Substance: HYDROCHLOROTHIAZIDE\VALSARTAN
     Indication: BLOOD PRESSURE INCREASED
     Dosage: 1 DF, QD
     Route: 048
     Dates: start: 2017, end: 20200328
  2. CO-DIOVAN [Suspect]
     Active Substance: HYDROCHLOROTHIAZIDE\VALSARTAN
     Indication: HYPERTENSION
  3. AESCULUS HIPPOCASTANUM [Concomitant]
     Active Substance: HORSE CHESTNUT
     Indication: CARDIOVASCULAR DISORDER
     Route: 065

REACTIONS (5)
  - Blood pressure increased [Recovered/Resolved]
  - Drug ineffective [Unknown]
  - Eating disorder [Unknown]
  - Blood cholesterol increased [Not Recovered/Not Resolved]
  - Salmonellosis [Recovered/Resolved]

NARRATIVE: CASE EVENT DATE: 202003
